FAERS Safety Report 14403071 (Version 2)
Quarter: 2018Q1

REPORT INFORMATION
  Report Type: Spontaneous
  Country: ES (occurrence: ES)
  Receive Date: 20180117
  Receipt Date: 20180131
  Transmission Date: 20180509
  Serious: Yes (Death, Other)
  Sender: FDA-Public Use
  Company Number: ES-BAYER-2018-004993

PATIENT
  Age: 64 Year
  Sex: Female

DRUGS (7)
  1. NEXAVAR [Suspect]
     Active Substance: SORAFENIB
     Indication: FOLLICULAR THYROID CANCER
     Dosage: 400 MG, BID
     Dates: start: 2009, end: 2011
  2. NEXAVAR [Suspect]
     Active Substance: SORAFENIB
     Indication: FOLLICULAR THYROID CANCER
     Dosage: 400MG DAILY
     Route: 048
     Dates: start: 201005
  3. PAZOPANIB [Suspect]
     Active Substance: PAZOPANIB
     Dosage: UNK
     Dates: start: 201110
  4. NEXAVAR [Suspect]
     Active Substance: SORAFENIB
     Indication: FOLLICULAR THYROID CANCER
     Dosage: 400 MG, QD
     Dates: start: 201302, end: 2013
  5. LENALIDOMIDE [Suspect]
     Active Substance: LENALIDOMIDE
     Dosage: UNK
     Dates: start: 201310, end: 201404
  6. VANDETANIB. [Suspect]
     Active Substance: VANDETANIB
     Dosage: UNK
     Dates: start: 201405, end: 201408
  7. PAZOPANIB [Suspect]
     Active Substance: PAZOPANIB
     Dosage: DOSE REDUCED
     Dates: end: 201302

REACTIONS (15)
  - Dyspnoea [Unknown]
  - Lymphadenopathy mediastinal [Unknown]
  - Musculoskeletal pain [Unknown]
  - General physical health deterioration [None]
  - Asthenia [Unknown]
  - Therapeutic response decreased [None]
  - Off label use [None]
  - Respiratory failure [Fatal]
  - Neoplasm progression [Unknown]
  - Lung disorder [Unknown]
  - Diarrhoea [Recovering/Resolving]
  - Rash [None]
  - Rash [Unknown]
  - Musculoskeletal pain [None]
  - Neoplasm progression [Fatal]

NARRATIVE: CASE EVENT DATE: 2009
